FAERS Safety Report 24102938 (Version 1)
Quarter: 2024Q3

REPORT INFORMATION
  Report Type: Spontaneous
  Country: US (occurrence: US)
  Receive Date: 20240717
  Receipt Date: 20240717
  Transmission Date: 20241016
  Serious: No
  Sender: NOVO NORDISK
  Company Number: US-NOVOPROD-1158419

PATIENT
  Age: 67 Year
  Sex: Male

DRUGS (2)
  1. OZEMPIC [Suspect]
     Active Substance: SEMAGLUTIDE
     Indication: Type 3 diabetes mellitus
     Dosage: ONCE A WEEK
     Route: 058
  2. TRESIBA [Suspect]
     Active Substance: INSULIN DEGLUDEC
     Indication: Type 3 diabetes mellitus
     Dosage: EVERY DAY
     Route: 058

REACTIONS (6)
  - Weight increased [Recovered/Resolved]
  - Bowel movement irregularity [Not Recovered/Not Resolved]
  - Weight fluctuation [Not Recovered/Not Resolved]
  - Constipation [Not Recovered/Not Resolved]
  - Product storage error [Unknown]
  - Off label use [Not Recovered/Not Resolved]
